FAERS Safety Report 8413782-9 (Version None)
Quarter: 2012Q2

REPORT INFORMATION
  Report Type: 
  Country: None (occurrence: None)
  Receive Date: 20120605
  Receipt Date: 20120403
  Transmission Date: 20120825
  Serious: Yes (Other)
  Sender: FDA-Public Use
  Company Number: US-ROCHE-1056827

PATIENT
  Sex: Female
  Weight: 60.382 kg

DRUGS (3)
  1. XELODA [Suspect]
     Indication: HEPATIC NEOPLASM MALIGNANT
     Route: 048
     Dates: start: 20110301
  2. XELODA [Suspect]
     Route: 048
     Dates: start: 20110628
  3. UDDERLY SMOOTH CREAM [Concomitant]
     Indication: DRY SKIN
     Route: 061

REACTIONS (10)
  - PALMAR-PLANTAR ERYTHRODYSAESTHESIA SYNDROME [None]
  - DRY SKIN [None]
  - DIARRHOEA [None]
  - SKIN EXFOLIATION [None]
  - ALOPECIA [None]
  - ERYTHEMA [None]
  - FATIGUE [None]
  - POLLAKIURIA [None]
  - CATARACT OPERATION [None]
  - URINARY INCONTINENCE [None]
